FAERS Safety Report 7247655-4 (Version None)
Quarter: 2011Q1

REPORT INFORMATION
  Report Type: 
  Country: None (occurrence: None)
  Receive Date: 20110127
  Receipt Date: 20101215
  Transmission Date: 20110831
  Serious: Yes (Death, Other)
  Sender: FDA-Public Use
  Company Number: US-BAXTER-2009BH018288

PATIENT
  Age: 82 Year
  Sex: Female

DRUGS (15)
  1. HYDROCHLOROTHIAZIDE [Concomitant]
     Indication: PRODUCT USED FOR UNKNOWN INDICATION
     Route: 048
  2. HEPARIN SODIUM INJECTION [Suspect]
     Indication: THROMBOSIS PROPHYLAXIS
     Route: 058
     Dates: start: 20070905, end: 20070922
  3. HEPARIN SODIUM INJECTION [Suspect]
     Route: 058
     Dates: start: 20070929, end: 20071002
  4. HEPARIN [Suspect]
     Indication: CENTRAL VENOUS CATHETERISATION
     Dates: start: 20070929, end: 20071005
  5. HEPARIN [Suspect]
     Dates: start: 20071016, end: 20071016
  6. METOPROLOL [Concomitant]
     Indication: PRODUCT USED FOR UNKNOWN INDICATION
     Route: 048
  7. HEPARIN [Suspect]
     Dates: start: 20071102, end: 20071106
  8. NIFEDIPINE [Concomitant]
     Indication: PRODUCT USED FOR UNKNOWN INDICATION
     Route: 048
  9. METFORMIN [Concomitant]
     Indication: PRODUCT USED FOR UNKNOWN INDICATION
     Route: 048
  10. NOVOLIN N [Concomitant]
     Indication: DIABETES MELLITUS
     Route: 065
  11. REGULAR INSULIN [Concomitant]
     Indication: PRODUCT USED FOR UNKNOWN INDICATION
     Route: 058
  12. HEPARIN SODIUM INJECTION [Suspect]
     Route: 058
     Dates: start: 20070924, end: 20070925
  13. LOVASTATIN [Concomitant]
     Indication: PRODUCT USED FOR UNKNOWN INDICATION
     Route: 048
  14. ATENOLOL [Concomitant]
     Indication: PRODUCT USED FOR UNKNOWN INDICATION
     Route: 048
  15. FLUDROCORTISONE [Concomitant]
     Indication: PRODUCT USED FOR UNKNOWN INDICATION
     Route: 048

REACTIONS (17)
  - SEPSIS [None]
  - SOFT TISSUE NECROSIS [None]
  - MULTI-ORGAN FAILURE [None]
  - URINARY TRACT INFECTION PSEUDOMONAL [None]
  - ATRIAL FIBRILLATION [None]
  - CITROBACTER INFECTION [None]
  - MYOPATHY [None]
  - ASTHENIA [None]
  - SEPTIC SHOCK [None]
  - THROMBOCYTOPENIA [None]
  - ATRIAL FLUTTER [None]
  - DERMATITIS EXFOLIATIVE [None]
  - PHARYNGEAL OEDEMA [None]
  - DECUBITUS ULCER [None]
  - BACTERAEMIA [None]
  - HYPOTHYROIDISM [None]
  - ACUTE RESPIRATORY DISTRESS SYNDROME [None]
